FAERS Safety Report 12221883 (Version 1)
Quarter: 2016Q1

REPORT INFORMATION
  Report Type: Spontaneous
  Country: US (occurrence: US)
  Receive Date: 20160330
  Receipt Date: 20160330
  Transmission Date: 20160526
  Serious: No
  Sender: FDA-Public Use
  Company Number: US-MYLANLABS-2015M1008856

PATIENT
  Sex: Female
  Weight: 92.97 kg

DRUGS (12)
  1. NEXIUM [Concomitant]
     Active Substance: ESOMEPRAZOLE MAGNESIUM
     Dosage: 40 MG, QD
  2. VITAMIN D                          /00107901/ [Concomitant]
     Active Substance: ERGOCALCIFEROL
     Dosage: 2000 MG, TID
  3. SYMBYAX [Concomitant]
     Active Substance: FLUOXETINE HYDROCHLORIDE\OLANZAPINE
     Dosage: 06 MG, ONCE
  4. LIDOCAIN                           /00033401/ [Concomitant]
     Active Substance: LIDOCAINE
     Dosage: 5 %, QD
  5. ASPIRIN                            /00002701/ [Concomitant]
     Active Substance: ASPIRIN
     Dosage: 81 MG, QD
  6. FENTANYL TRANSDERMAL SYSTEM [Suspect]
     Active Substance: FENTANYL
     Indication: ABDOMINAL ADHESIONS
     Dosage: UNK, Q72 HR
     Dates: start: 2006, end: 2010
  7. PERCOCET                           /00446701/ [Concomitant]
     Active Substance: ACETAMINOPHEN\OXYCODONE HYDROCHLORIDE\OXYCODONE TEREPHTHALATE
     Dosage: 10 MG, 3-5 TIMES PER DAY
  8. CALCIUM [Concomitant]
     Active Substance: CALCIUM
     Dosage: 1200 MG, QD
  9. LYRICA [Concomitant]
     Active Substance: PREGABALIN
     Dosage: 75 MG, BID
  10. VITAMIN B12 [Concomitant]
     Active Substance: CYANOCOBALAMIN
     Dosage: 2500 ?G, BID
     Route: 060
  11. FENTANYL TRANSDERMAL SYSTEM [Suspect]
     Active Substance: FENTANYL
     Dosage: UNK
     Dates: start: 2011
  12. FISH OIL [Concomitant]
     Active Substance: FISH OIL
     Dosage: 1200/1000 IU, BID

REACTIONS (3)
  - Drug effect decreased [Not Recovered/Not Resolved]
  - Tremor [None]
  - Pain [Not Recovered/Not Resolved]
